FAERS Safety Report 8523160-X (Version None)
Quarter: 2012Q3

REPORT INFORMATION
  Report Type: 
  Country: None (occurrence: None)
  Receive Date: 20120713
  Receipt Date: 20120713
  Transmission Date: 20120928
  Serious: No
  Sender: FDA-Public Use
  Company Number: None

PATIENT
  Age: 64 Year
  Sex: Male
  Weight: 132.4 kg

DRUGS (2)
  1. LISINOPRIL [Suspect]
     Dosage: MG, EVERY DAY, PO
     Route: 048
     Dates: start: 20110628
  2. SULFAMETHOXAZOLE AND TRIMETHOPRIM [Suspect]
     Indication: INFECTION
     Dosage: 1 TAB, BID, PO
     Route: 048
     Dates: start: 20120312, end: 20120413

REACTIONS (1)
  - HYPERKALAEMIA [None]
